FAERS Safety Report 9671108 (Version 1)
Quarter: 2013Q4

REPORT INFORMATION
  Report Type: Spontaneous
  Country: US (occurrence: US)
  Receive Date: 20131106
  Receipt Date: 20131106
  Transmission Date: 20140711
  Serious: No
  Sender: FDA-Public Use
  Company Number: US-PFIZER INC-2013312156

PATIENT
  Sex: Female

DRUGS (30)
  1. DETROL LA [Suspect]
     Dosage: UNK
  2. ZOLOFT [Suspect]
     Dosage: UNK
  3. NEURONTIN [Suspect]
     Dosage: UNK
  4. LYRICA [Suspect]
     Dosage: UNK
     Route: 048
     Dates: start: 20110418
  5. SKELAXIN [Suspect]
     Dosage: UNK
     Route: 048
     Dates: start: 20130308
  6. ATARAX [Suspect]
     Dosage: UNK
  7. MAXAQUIN [Suspect]
     Dosage: UNK
  8. SPIRIVA ^BOEHRINGER INGELHEIM^ [Suspect]
     Dosage: 1 DF, UNK
     Route: 055
     Dates: start: 20120424
  9. ASPIRIN [Suspect]
     Dosage: UNK
  10. AUGMENTIN [Suspect]
     Dosage: UNK
  11. BACTRIM [Suspect]
     Dosage: UNK
  12. BENADRYL [Suspect]
     Dosage: UNK
  13. CEPHALEXIN [Suspect]
     Dosage: UNK
  14. CIPRO ^BAYER^ [Suspect]
     Dosage: UNK
  15. DEMEROL [Suspect]
     Dosage: UNK
  16. DILAUDID [Suspect]
     Dosage: UNK
  17. DIPRIVAN [Suspect]
     Dosage: UNK
  18. DYNABAC [Suspect]
     Dosage: UNK
  19. LEVAQUIN [Suspect]
     Dosage: UNK
  20. OXYBUTYNIN CHLORIDE [Suspect]
     Dosage: UNK
  21. OXYCONTIN [Suspect]
     Dosage: UNK
  22. PYRIDIUM [Suspect]
     Dosage: UNK
  23. SECONAL SODIUM [Suspect]
     Dosage: UNK
  24. TOPAMAX [Suspect]
     Dosage: UNK
  25. TORADOL [Suspect]
     Dosage: UNK
  26. TRIMPEX [Suspect]
     Dosage: UNK
  27. TUSSIONEX PENNKINETIC [Suspect]
     Dosage: UNK
  28. UROXATRAL [Suspect]
     Dosage: UNK
  29. VICODIN [Suspect]
     Dosage: UNK
  30. VIOXX [Suspect]
     Dosage: UNK

REACTIONS (1)
  - Drug hypersensitivity [Not Recovered/Not Resolved]
